FAERS Safety Report 5246791-1 (Version None)
Quarter: 2007Q1

REPORT INFORMATION
  Report Type: 
  Country: None (occurrence: None)
  Receive Date: 20070223
  Receipt Date: 20070223
  Transmission Date: 20070707
  Serious: Yes (Hospitalization, Disabling)
  Sender: FDA-Public Use
  Company Number: None

PATIENT
  Sex: Male

DRUGS (2)
  1. APTIVUS [Suspect]
     Indication: ACQUIRED IMMUNODEFICIENCY SYNDROME
     Dosage: 500 MG BID PO
     Route: 048
     Dates: start: 20051001, end: 20060501
  2. PREZISTA [Suspect]
     Indication: HIV INFECTION
     Dosage: 600 MG BID PO
     Route: 048
     Dates: start: 20060501

REACTIONS (2)
  - DISORIENTATION [None]
  - INFARCTION [None]
